FAERS Safety Report 6675478-3 (Version None)
Quarter: 2010Q2

REPORT INFORMATION
  Report Type: 
  Country: None (occurrence: None)
  Receive Date: 20100409
  Receipt Date: 20100402
  Transmission Date: 20101027
  Serious: Yes (Life-Threatening, Hospitalization)
  Sender: FDA-Public Use
  Company Number: B0596695A

PATIENT
  Sex: Female

DRUGS (6)
  1. PAXIL [Suspect]
     Indication: DEPRESSION
     Dosage: 20MG PER DAY
     Route: 048
     Dates: start: 20080220, end: 20091001
  2. NORTRIPTYLINE HCL [Suspect]
     Indication: DRUG USE FOR UNKNOWN INDICATION
     Dosage: 25MG TWICE PER DAY
     Route: 048
  3. SEROQUEL [Concomitant]
     Dosage: 25MG PER DAY
     Route: 048
  4. ROHYPNOL [Concomitant]
     Dosage: 2MG PER DAY
     Route: 048
  5. LENDORMIN [Concomitant]
     Dosage: .5MG PER DAY
     Route: 048
  6. CONSTAN [Concomitant]
     Route: 048

REACTIONS (6)
  - ALTERED STATE OF CONSCIOUSNESS [None]
  - ARRHYTHMIA [None]
  - BLOOD PRESSURE DECREASED [None]
  - CONVULSION [None]
  - OVERDOSE [None]
  - RESPIRATORY DEPRESSION [None]
